FAERS Safety Report 4818386-2 (Version None)
Quarter: 2005Q4

REPORT INFORMATION
  Report Type: 
  Country: None (occurrence: None)
  Receive Date: 20051031
  Receipt Date: 20051019
  Transmission Date: 20060501
  Serious: Yes (Other)
  Sender: FDA-Public Use
  Company Number: HQWYE201924OCT05

PATIENT
  Age: 54 Year
  Sex: Female
  Weight: 113.5 kg

DRUGS (4)
  1. ADVIL [Suspect]
     Indication: ARTHRITIS
     Dosage: 2 CAPLETS TWO TIMES A DAY, ORAL
     Route: 048
     Dates: start: 20050101
  2. GLUCOPHAGE [Concomitant]
  3. BENICAR [Concomitant]
  4. XALATAN [Concomitant]

REACTIONS (2)
  - BLOOD GLUCOSE INCREASED [None]
  - CONDITION AGGRAVATED [None]
